FAERS Safety Report 7570101-8 (Version None)
Quarter: 2011Q2

REPORT INFORMATION
  Report Type: 
  Country: None (occurrence: None)
  Receive Date: 20110622
  Receipt Date: 20110622
  Transmission Date: 20111010
  Serious: Yes (Disabling)
  Sender: FDA-Public Use
  Company Number: None

PATIENT
  Sex: Male
  Weight: 90.7194 kg

DRUGS (1)
  1. CIALIS [Suspect]
     Dosage: 5MG DAILY PILL
     Dates: start: 20110101, end: 20110301

REACTIONS (4)
  - OPTIC ISCHAEMIC NEUROPATHY [None]
  - COLOUR BLINDNESS [None]
  - VISION BLURRED [None]
  - IMPAIRED DRIVING ABILITY [None]
